FAERS Safety Report 8354860-2 (Version None)
Quarter: 2012Q2

REPORT INFORMATION
  Report Type: 
  Country: None (occurrence: None)
  Receive Date: 20120511
  Receipt Date: 20120430
  Transmission Date: 20120825
  Serious: Yes (Other)
  Sender: FDA-Public Use
  Company Number: US-JNJFOC-20120101594

PATIENT
  Sex: Female
  Weight: 81.65 kg

DRUGS (2)
  1. ORTHO EVRA [Suspect]
     Indication: CONTRACEPTION
     Route: 062
     Dates: start: 20110901, end: 20110901
  2. ORTHO TRI-CYCLEN LO [Suspect]
     Indication: CONTRACEPTION
     Route: 048

REACTIONS (5)
  - FALL [None]
  - BACK PAIN [None]
  - PAIN IN EXTREMITY [None]
  - GAIT DISTURBANCE [None]
  - CRYING [None]
